FAERS Safety Report 7100158-X (Version None)
Quarter: 2010Q4

REPORT INFORMATION
  Report Type: 
  Country: None (occurrence: None)
  Receive Date: 20101112
  Receipt Date: 20100602
  Transmission Date: 20110411
  Serious: No
  Sender: FDA-Public Use
  Company Number: A0865083A

PATIENT
  Age: 52 Year
  Sex: Male

DRUGS (2)
  1. COREG [Suspect]
     Indication: HYPERTENSION
     Dosage: 80MG PER DAY
     Route: 048
     Dates: start: 20090101
  2. LOVAZA [Concomitant]

REACTIONS (2)
  - DRUG TOLERANCE INCREASED [None]
  - WEIGHT LOSS POOR [None]
